FAERS Safety Report 10517921 (Version 2)
Quarter: 2014Q4

REPORT INFORMATION
  Report Type: Spontaneous
  Country: SE (occurrence: SE)
  Receive Date: 20141015
  Receipt Date: 20141117
  Transmission Date: 20150528
  Serious: Yes (Other)
  Sender: FDA-Public Use
  Company Number: SE-BRISTOL-MYERS SQUIBB COMPANY-21475405

PATIENT
  Age: 74 Year
  Sex: Female

DRUGS (6)
  1. DESLORATADINE. [Concomitant]
     Active Substance: DESLORATADINE
  2. TAVEGYL [Concomitant]
     Active Substance: CLEMASTINE FUMARATE
  3. SOBRIL [Concomitant]
     Active Substance: OXAZEPAM
  4. ELIQUIS [Suspect]
     Active Substance: APIXABAN
     Indication: COAGULOPATHY
     Route: 048
     Dates: start: 20140731, end: 20140925
  5. ALVEDON [Concomitant]
     Active Substance: ACETAMINOPHEN
  6. STILNOCT [Concomitant]
     Active Substance: ZOLPIDEM TARTRATE

REACTIONS (1)
  - Toxic skin eruption [Recovered/Resolved]

NARRATIVE: CASE EVENT DATE: 20140916
